FAERS Safety Report 18857978 (Version 2)
Quarter: 2022Q1

REPORT INFORMATION
  Report Type: Spontaneous
  Country: US (occurrence: US)
  Receive Date: 20210208
  Receipt Date: 20220214
  Transmission Date: 20220423
  Serious: No
  Sender: FDA-Public Use
  Company Number: US-AUROBINDO-AUR-APL-2020-062175

PATIENT
  Sex: Female

DRUGS (1)
  1. FAMOTIDINE [Suspect]
     Active Substance: FAMOTIDINE
     Indication: Dyspepsia
     Dosage: UNK
     Route: 065

REACTIONS (3)
  - Dyspepsia [Unknown]
  - Drug ineffective [Unknown]
  - Product substitution issue [Unknown]
